FAERS Safety Report 5425960-1 (Version None)
Quarter: 2007Q3

REPORT INFORMATION
  Report Type: 
  Country: None (occurrence: None)
  Receive Date: 20070827
  Receipt Date: 20070803
  Transmission Date: 20080115
  Serious: Yes (Other)
  Sender: FDA-Public Use
  Company Number: GB-BAYER-200510069BNE

PATIENT
  Age: 67 Year
  Sex: Male
  Weight: 67 kg

DRUGS (6)
  1. CIPROFLOXACIN [Suspect]
     Indication: BRONCHITIS
     Dosage: TOTAL DAILY DOSE: 1000 MG
     Route: 048
  2. SERETIDE [Concomitant]
  3. SPIRIVA [Concomitant]
  4. LIPITOR [Concomitant]
  5. ASPIRIN [Concomitant]
  6. ZANTAC 150 [Concomitant]

REACTIONS (1)
  - MUSCLE RUPTURE [None]
